FAERS Safety Report 7618520-5 (Version None)
Quarter: 2011Q3

REPORT INFORMATION
  Report Type: 
  Country: None (occurrence: None)
  Receive Date: 20110718
  Receipt Date: 20090710
  Transmission Date: 20111222
  Serious: Yes (Death, Other)
  Sender: FDA-Public Use
  Company Number: US-BAYER-200925966NA

PATIENT
  Age: 64 Year
  Sex: Male
  Weight: 120.18 kg

DRUGS (23)
  1. TRASYLOL [Suspect]
     Dosage: 200 ML CARDIOPULMONARY BYPASS PRIME
     Route: 042
     Dates: start: 20070709, end: 20070709
  2. NIFDEMIN [Concomitant]
     Indication: HYPERTENSION
     Dosage: 20 MG, UNK
     Route: 048
     Dates: start: 20070101
  3. TOPROL-XL [Concomitant]
     Dosage: 50 MG, UNK
     Route: 048
     Dates: start: 20050101
  4. LISINOPRIL [Concomitant]
     Indication: HYPERTENSION
     Dosage: 30 MG, UNK
     Route: 048
     Dates: start: 20070101
  5. LIDOCAINE [Concomitant]
     Dosage: 100 MG, UNK
     Route: 042
     Dates: start: 20070709, end: 20070709
  6. LOPRESSOR [Concomitant]
     Indication: HYPERTENSION
     Dosage: 100 MG, UNK
     Route: 048
     Dates: start: 20070101
  7. LIPITOR [Concomitant]
     Indication: ANGINA PECTORIS
  8. CARDIOPLEGIA [Concomitant]
     Dosage: UNK
     Route: 042
     Dates: start: 20070709
  9. NIFDEMIN [Concomitant]
     Indication: ANGINA PECTORIS
  10. LIPITOR [Concomitant]
     Indication: HYPERTENSION
     Dosage: 40 MG, UNK
     Route: 048
     Dates: start: 20040101
  11. MANNITOL [Concomitant]
     Dosage: UNK
     Route: 042
     Dates: start: 20070709, end: 20070709
  12. WHOLE BLOOD [Concomitant]
     Dosage: 1 U, UNK
     Dates: start: 20070709, end: 20070709
  13. HEPARIN [Concomitant]
     Dosage: UNK
     Route: 042
     Dates: start: 20070709, end: 20070709
  14. RED BLOOD CELLS [Concomitant]
     Dosage: 4 U, UNK
     Route: 042
     Dates: start: 20070709, end: 20070709
  15. PLASMA [Concomitant]
     Dosage: 2 U, UNK
     Route: 042
     Dates: start: 20070709, end: 20070709
  16. TRASYLOL [Suspect]
     Indication: MITRAL VALVE REPAIR
     Dosage: UNK, TEST DOSE
     Route: 042
     Dates: start: 20070709, end: 20070709
  17. TRASYLOL [Suspect]
     Indication: CORONARY ARTERY BYPASS
     Dosage: UNK, LOADING DOSE
     Route: 042
     Dates: start: 20070709, end: 20070709
  18. CARDIZEM [Concomitant]
     Indication: ANGINA PECTORIS
     Dosage: 120 MG, UNK
     Route: 048
     Dates: start: 20070101
  19. QUINAPRIL HCL [Concomitant]
     Indication: HYPERTENSION
     Dosage: 40 MG, UNK
     Route: 048
     Dates: start: 20030101, end: 20070101
  20. CLONIDINE [Concomitant]
     Indication: HYPERTENSION
     Dosage: 0.1 MG, UNK
     Route: 048
     Dates: start: 20070101
  21. FUROSEMIDE [Concomitant]
     Indication: POLYURIA
     Dosage: 40 MG, UNK
     Route: 048
     Dates: start: 20070101
  22. PAPAVERINE [Concomitant]
     Dosage: 60 MG, UNK
     Route: 042
     Dates: start: 20070709, end: 20070709
  23. ALBUMEN [Concomitant]
     Dosage: UNK
     Route: 042
     Dates: start: 20070709, end: 20070709

REACTIONS (5)
  - ANXIETY [None]
  - DEATH [None]
  - UNEVALUABLE EVENT [None]
  - ANHEDONIA [None]
  - INJURY [None]
